FAERS Safety Report 4965251-6 (Version None)
Quarter: 2006Q1

REPORT INFORMATION
  Report Type: 
  Country: None (occurrence: None)
  Receive Date: 20060130
  Receipt Date: 20051117
  Transmission Date: 20060701
  Serious: No
  Sender: FDA-Public Use
  Company Number: COT-0263-2005

PATIENT
  Age: 67 Year
  Sex: Male
  Weight: 111.1313 kg

DRUGS (11)
  1. VENTAVIS [Suspect]
     Indication: PULMONARY HYPERTENSION
     Dosage: 5 MCG 6 TO 7 X/ DAY IH
     Route: 055
     Dates: start: 20050927
  2. VENTAVIS [Suspect]
     Indication: PULMONARY HYPERTENSION
     Dosage: 5 MCG 6 TO 7 X/ DAY IH
     Route: 055
     Dates: start: 20050927
  3. ASPIRIN [Suspect]
     Indication: CORONARY ARTERY SURGERY
     Dosage: 81 MG QDAY PO
     Route: 048
  4. DEMADEX [Concomitant]
  5. ALDACTONE [Concomitant]
  6. LANTUS [Concomitant]
  7. HUMALOG [Concomitant]
  8. NEXIUM [Concomitant]
  9. XANAX [Concomitant]
  10. LIPITOR [Concomitant]
  11. DIOVAN [Concomitant]

REACTIONS (1)
  - GINGIVAL BLEEDING [None]
